FAERS Safety Report 15579044 (Version 2)
Quarter: 2018Q4

REPORT INFORMATION
  Report Type: Spontaneous
  Country: US (occurrence: US)
  Receive Date: 20181102
  Receipt Date: 20181113
  Transmission Date: 20190205
  Serious: Yes (Hospitalization, Other)
  Sender: FDA-Public Use
  Company Number: US-ALKERMES INC.-ALK-2018-005994

PATIENT
  Age: 5 Month

DRUGS (1)
  1. VIVITROL [Suspect]
     Active Substance: NALTREXONE
     Indication: MATERNAL EXPOSURE DURING PREGNANCY
     Dosage: 380 MG, QMO
     Route: 064

REACTIONS (3)
  - Unevaluable event [Unknown]
  - Brain operation [Unknown]
  - Foetal exposure during pregnancy [Unknown]

NARRATIVE: CASE EVENT DATE: 2018
